FAERS Safety Report 4410817-5 (Version None)
Quarter: 2004Q3

REPORT INFORMATION
  Report Type: 
  Country: None (occurrence: None)
  Receive Date: 20040729
  Receipt Date: 20040708
  Transmission Date: 20050211
  Serious: Yes (Disabling, Other)
  Sender: FDA-Public Use
  Company Number: US-MERCK-0407USA00777

PATIENT
  Age: 68 Year
  Sex: Female
  Weight: 101 kg

DRUGS (7)
  1. TYLENOL W/ CODEINE NO. 4 [Concomitant]
     Indication: ARTHRITIS
     Route: 048
     Dates: start: 19990101
  2. LOMOTIL [Concomitant]
     Indication: IRRITABLE BOWEL SYNDROME
     Route: 048
     Dates: start: 20010101
  3. PHENERGAN EXPECTORANT W/ CODEINE [Concomitant]
     Indication: COUGH
     Route: 048
     Dates: start: 19990101
  4. VALIUM [Concomitant]
     Indication: ANXIETY
     Route: 048
     Dates: start: 20010101
  5. ADVAIR DISKUS 100/50 [Concomitant]
     Indication: ASTHMA
     Route: 055
     Dates: start: 20010101
  6. VIOXX [Suspect]
     Indication: ARTHRITIS
     Route: 048
     Dates: start: 20040430, end: 20040629
  7. VIOXX [Suspect]
     Route: 065

REACTIONS (5)
  - DRUG INEFFECTIVE [None]
  - DYSPNOEA [None]
  - HYPERTENSION [None]
  - OEDEMA PERIPHERAL [None]
  - RENAL FAILURE [None]
